FAERS Safety Report 23260455 (Version 2)
Quarter: 2023Q4

REPORT INFORMATION
  Report Type: Spontaneous
  Country: US (occurrence: US)
  Receive Date: 20231205
  Receipt Date: 20231219
  Transmission Date: 20240109
  Serious: Yes (Other)
  Sender: FDA-Public Use
  Company Number: None

PATIENT
  Age: 2 Year
  Sex: Female

DRUGS (13)
  1. ISONIAZID [Suspect]
     Active Substance: ISONIAZID
     Indication: Antibiotic prophylaxis
     Dosage: UNK
     Route: 065
  2. TACROLIMUS [Suspect]
     Active Substance: TACROLIMUS
     Indication: Immunosuppressant drug therapy
     Dosage: UNK (INITIAL TARGET TROUGH LEVELS 10-15?NG/ML)
     Route: 065
  3. TACROLIMUS [Suspect]
     Active Substance: TACROLIMUS
     Dosage: UNK (TARGET TROUGH 3-6?NG/ML, REINITIATED DOSE)
     Route: 065
  4. EVEROLIMUS [Suspect]
     Active Substance: EVEROLIMUS
     Indication: Immunosuppressant drug therapy
     Dosage: UNK (INITIATED TO TARGET TROUGHS 8-12?NG/ ML)
     Route: 065
  5. EVEROLIMUS [Suspect]
     Active Substance: EVEROLIMUS
     Dosage: UNK (REMAINED ON TARGET TROUGH 7-10?NG/ML)
     Route: 065
  6. MYCOPHENOLATE MOFETIL [Suspect]
     Active Substance: MYCOPHENOLATE MOFETIL
     Indication: Immunosuppressant drug therapy
     Dosage: 600 MILLIGRAM/SQ. METER, BID ( EVERY 12 HOUR)
     Route: 065
  7. BORTEZOMIB [Suspect]
     Active Substance: BORTEZOMIB
     Indication: Tuberculosis
     Dosage: 1.3 MILLIGRAM/SQ. METER
     Route: 065
  8. METHYLPREDNISOLONE [Suspect]
     Active Substance: METHYLPREDNISOLONE
     Indication: Transplant rejection
     Dosage: 10 MILLIGRAM/KILOGRAM (3 DOSES)
     Route: 042
  9. METHYLPREDNISOLONE [Suspect]
     Active Substance: METHYLPREDNISOLONE
     Dosage: 15 MILLIGRAM/KILOGRAM, QD (THREE CONSECUTIVE DAILY DOSES)
     Route: 042
  10. BASILIXIMAB [Suspect]
     Active Substance: BASILIXIMAB
     Indication: Immunosuppressant drug therapy
     Dosage: UNK
     Route: 065
  11. PREDNISONE [Suspect]
     Active Substance: PREDNISONE
     Indication: Immunosuppressant drug therapy
     Dosage: 1.5 MILLIGRAM/KILOGRAM, QD (EVERY 1 DAY)
     Route: 065
  12. PREDNISONE [Suspect]
     Active Substance: PREDNISONE
     Dosage: 0.1 MILLIGRAM/KILOGRAM
     Route: 065
  13. RITUXIMAB [Suspect]
     Active Substance: RITUXIMAB
     Indication: Transplant rejection
     Dosage: 375 MILLIGRAM/SQ. METER
     Route: 065

REACTIONS (7)
  - Transplant rejection [Unknown]
  - Posterior reversible encephalopathy syndrome [Unknown]
  - Neurotoxicity [Unknown]
  - Thrombocytopenia [Unknown]
  - Neuropathy peripheral [Unknown]
  - Drug level above therapeutic [Unknown]
  - Toxicity to various agents [Unknown]
